FAERS Safety Report 9939131 (Version 3)
Quarter: 2014Q1

REPORT INFORMATION
  Report Type: Not Available
  Country: FR (occurrence: FR)
  Receive Date: 20140303
  Receipt Date: 20140314
  Transmission Date: 20141002
  Serious: Yes (Hospitalization, Other)
  Sender: FDA-Public Use
  Company Number: FR-ASTELLAS-2014EU001675

PATIENT
  Age: 81 Year
  Sex: Male

DRUGS (8)
  1. XTANDI [Suspect]
     Indication: PROSTATE CANCER METASTATIC
     Dosage: 40 MG, QID
     Route: 048
     Dates: start: 20140109
  2. TRIATEC /00116401/ [Suspect]
     Indication: CARDIAC FAILURE
     Dosage: 1.25 MG, BID
     Route: 048
  3. LASILIX /00032601/ [Suspect]
     Indication: CARDIAC FAILURE
     Dosage: 60 MG, UNKNOWN/D
     Route: 048
  4. PREVISCAN                          /00789001/ [Concomitant]
     Dosage: UNK
     Route: 065
     Dates: start: 20140123
  5. LODOZ [Concomitant]
     Dosage: UNK
     Route: 065
     Dates: start: 20140123
  6. PRAVADUAL [Concomitant]
     Dosage: UNK
     Route: 065
     Dates: start: 20140123
  7. ZOLADEX                            /00732101/ [Concomitant]
     Dosage: UNK
     Route: 065
     Dates: start: 20140123
  8. CORTANCYL [Concomitant]
     Dosage: UNK
     Route: 065
     Dates: start: 20140123

REACTIONS (2)
  - Cardiac failure [Recovering/Resolving]
  - Neutropenia [Recovered/Resolved]
